FAERS Safety Report 22636875 (Version 1)
Quarter: 2023Q2

REPORT INFORMATION
  Report Type: Spontaneous
  Country: US (occurrence: US)
  Receive Date: 20230626
  Receipt Date: 20230626
  Transmission Date: 20230722
  Serious: Yes (Life-Threatening, Hospitalization, Other)
  Sender: FDA-Public Use
  Company Number: US-Accord-363383

PATIENT
  Age: 5 Year
  Sex: Female

DRUGS (5)
  1. AZACITIDINE [Suspect]
     Active Substance: AZACITIDINE
     Indication: Leukaemia
     Dosage: ONCE DAILY ON DAYS 1-7 FOR FIRST AND?SECOND CYCLES
  2. VENETOCLAX [Suspect]
     Active Substance: VENETOCLAX
     Indication: Leukaemia
     Dosage: ONCE ON DAY 1
  3. VENETOCLAX [Suspect]
     Active Substance: VENETOCLAX
     Indication: Leukaemia
     Dosage: ONCE ON DAY 2
  4. VENETOCLAX [Suspect]
     Active Substance: VENETOCLAX
     Indication: Leukaemia
     Dosage: ONCE ON DAY 3
  5. VENETOCLAX [Suspect]
     Active Substance: VENETOCLAX
     Indication: Leukaemia
     Dosage: ONCE DAILY ON DAYS 4-21 DURING THE FIRST CYCLE AND DAYS 4-14 DURING THE SECOND CYCLE

REACTIONS (2)
  - Subdural haematoma [Unknown]
  - Neutropenia [Unknown]
